FAERS Safety Report 5705653-3 (Version None)
Quarter: 2008Q2

REPORT INFORMATION
  Report Type: 
  Country: None (occurrence: None)
  Receive Date: 20080415
  Receipt Date: 20080407
  Transmission Date: 20081010
  Serious: Yes (Life-Threatening, Hospitalization)
  Sender: FDA-Public Use
  Company Number: FR-RB-000743-08

PATIENT
  Age: 33 Year
  Sex: Female

DRUGS (6)
  1. SUBUTEX [Suspect]
     Indication: DRUG USE FOR UNKNOWN INDICATION
     Dosage: DOSAGE UNKNOWN
     Route: 048
     Dates: end: 20071213
  2. AMOXICILLIN [Suspect]
     Indication: DRUG USE FOR UNKNOWN INDICATION
     Dosage: DOSAGE UNKNOWN
     Route: 048
     Dates: start: 20071213, end: 20071213
  3. PNEUMOREL [Suspect]
     Indication: DRUG USE FOR UNKNOWN INDICATION
     Dosage: DOSAGE UNKNOWN
     Route: 048
     Dates: start: 20071213, end: 20071213
  4. IMOVANE [Suspect]
     Indication: DRUG USE FOR UNKNOWN INDICATION
     Dosage: DOSAGE UNKNOWN
     Route: 048
     Dates: end: 20071213
  5. PARACETAMOL [Suspect]
     Indication: DRUG USE FOR UNKNOWN INDICATION
     Dosage: DOSAGE UNKNOWN
     Route: 048
     Dates: end: 20071213
  6. BRONCHOKOD [Suspect]
     Indication: DRUG USE FOR UNKNOWN INDICATION
     Dosage: DOASGE UNKNOWN
     Route: 048
     Dates: start: 20071213, end: 20071213

REACTIONS (2)
  - HEPATITIS [None]
  - TOXIC EPIDERMAL NECROLYSIS [None]
